FAERS Safety Report 16731845 (Version 2)
Quarter: 2019Q3

REPORT INFORMATION
  Report Type: Spontaneous
  Country: US (occurrence: US)
  Receive Date: 20190822
  Receipt Date: 20190905
  Transmission Date: 20191005
  Serious: No
  Sender: FDA-Public Use
  Company Number: US-TRIS PHARMA, INC.-19US000156

PATIENT

DRUGS (3)
  1. DEXTROMETHORPHAN POLISTIREX [Suspect]
     Active Substance: DEXTROMETHORPHAN HYDROBROMIDE
     Indication: COUGH
     Dosage: 10 MILLILITER, BEDTIME
     Route: 048
     Dates: start: 20190730, end: 20190731
  2. CLARITIN [Concomitant]
     Active Substance: LORATADINE
     Indication: SEASONAL ALLERGY
     Dosage: UNK
     Route: 065
     Dates: start: 20190809
  3. CLARITIN [Concomitant]
     Active Substance: LORATADINE
     Dosage: UNK
     Route: 065
     Dates: start: 20190712, end: 201907

REACTIONS (4)
  - Drug ineffective [Unknown]
  - Dysgeusia [Recovered/Resolved]
  - Incorrect product administration duration [Unknown]
  - Product taste abnormal [Unknown]

NARRATIVE: CASE EVENT DATE: 20190730
